FAERS Safety Report 6684629-6 (Version None)
Quarter: 2010Q2

REPORT INFORMATION
  Report Type: 
  Country: None (occurrence: None)
  Receive Date: 20100416
  Receipt Date: 20100406
  Transmission Date: 20101027
  Serious: Yes (Other)
  Sender: FDA-Public Use
  Company Number: US-PFIZER INC-2010028477

PATIENT
  Sex: Female
  Weight: 58 kg

DRUGS (2)
  1. CHANTIX [Suspect]
     Indication: SMOKING CESSATION THERAPY
     Dosage: UNK
     Route: 048
     Dates: start: 20060101
  2. KLONOPIN [Concomitant]
     Dosage: 1 MG, 3X/DAY

REACTIONS (4)
  - CONVULSION [None]
  - HYPONATRAEMIA [None]
  - MANIA [None]
  - MEMORY IMPAIRMENT [None]
